FAERS Safety Report 8025954-6 (Version None)
Quarter: 2012Q1

REPORT INFORMATION
  Report Type: 
  Country: None (occurrence: None)
  Receive Date: 20120105
  Receipt Date: 20110922
  Transmission Date: 20120608
  Serious: No
  Sender: FDA-Public Use
  Company Number: US-ABBOTT-11P-163-0858287-00

PATIENT
  Sex: Female
  Weight: 67.192 kg

DRUGS (2)
  1. SYNTHROID [Suspect]
     Indication: HYPOTHYROIDISM
     Route: 048
     Dates: start: 20110501
  2. SYNTHROID [Suspect]
     Route: 048
     Dates: start: 20080101, end: 20110501

REACTIONS (9)
  - IRRITABILITY [None]
  - ALOPECIA [None]
  - CONSTIPATION [None]
  - MOOD SWINGS [None]
  - DRUG INEFFECTIVE [None]
  - WEIGHT INCREASED [None]
  - FATIGUE [None]
  - ASTHENIA [None]
  - MOOD ALTERED [None]
